FAERS Safety Report 18322654 (Version 1)
Quarter: 2020Q3

REPORT INFORMATION
  Report Type: Spontaneous
  Country: ES (occurrence: ES)
  Receive Date: 20200928
  Receipt Date: 20200928
  Transmission Date: 20201103
  Serious: Yes (Life-Threatening, Hospitalization)
  Sender: FDA-Public Use
  Company Number: ES-009507513-2009ESP009639

PATIENT
  Age: 64 Year
  Sex: Female

DRUGS (3)
  1. MIRTAZAPINE. [Suspect]
     Active Substance: MIRTAZAPINE
     Indication: INTENTIONAL OVERDOSE
     Dosage: 900 MILLIGRAM, ONCE, (TOTAL), 30 TABLET
     Route: 048
     Dates: start: 20200911, end: 20200911
  2. DEPRAX (FLUOXETINE HYDROCHLORIDE) [Interacting]
     Active Substance: FLUOXETINE HYDROCHLORIDE
     Indication: INTENTIONAL OVERDOSE
     Dosage: 300 MILLIGRAM, ONCE, 30 TABLETS; TABLETS COATED WITH EFG FILM
     Route: 048
     Dates: start: 20200911, end: 20200911
  3. TRANXILIUM [Interacting]
     Active Substance: CLORAZEPATE DIPOTASSIUM
     Indication: INTENTIONAL OVERDOSE
     Dosage: 600 MILLIGRAM, ONCE,  30 CAPSULE, 2 BOXES
     Route: 048
     Dates: start: 20200911, end: 20200911

REACTIONS (2)
  - Confusional state [Recovering/Resolving]
  - Aspiration [Recovering/Resolving]

NARRATIVE: CASE EVENT DATE: 20200912
